FAERS Safety Report 7381273-2 (Version None)
Quarter: 2011Q1

REPORT INFORMATION
  Report Type: 
  Country: None (occurrence: None)
  Receive Date: 20110329
  Receipt Date: 20110316
  Transmission Date: 20110831
  Serious: Yes (Hospitalization, Other)
  Sender: FDA-Public Use
  Company Number: US-AMGEN-USASP2010002889

PATIENT
  Age: 23 Year
  Sex: Female

DRUGS (1)
  1. NPLATE [Suspect]
     Indication: IDIOPATHIC THROMBOCYTOPENIC PURPURA
     Dates: start: 20100513

REACTIONS (3)
  - ECTOPIC PREGNANCY [None]
  - POSTOPERATIVE THROMBOSIS [None]
  - PELVIC VENOUS THROMBOSIS [None]
